FAERS Safety Report 4667940-X (Version None)
Quarter: 2005Q2

REPORT INFORMATION
  Report Type: 
  Country: None (occurrence: None)
  Receive Date: 20050519
  Receipt Date: 20050505
  Transmission Date: 20051028
  Serious: Yes (Other)
  Sender: FDA-Public Use
  Company Number: GB-2005-006322

PATIENT
  Age: 33 Year
  Sex: Female

DRUGS (4)
  1. BETAFERON (INTERFERON BETA - 1B) INJECTION, 250UG [Suspect]
     Indication: MULTIPLE SCLEROSIS
     Dosage: SUCUTANEOUS
     Dates: start: 20040701
  2. COPAXONE [Concomitant]
  3. TOPIRAMATE [Concomitant]
  4. BACLOFEN [Concomitant]

REACTIONS (4)
  - ABNORMAL CLOTTING FACTOR [None]
  - CONTUSION [None]
  - EPISTAXIS [None]
  - WEIGHT DECREASED [None]
